FAERS Safety Report 4341892-4 (Version None)
Quarter: 2004Q2

REPORT INFORMATION
  Report Type: 
  Country: None (occurrence: None)
  Receive Date: 20040415
  Receipt Date: 20040331
  Transmission Date: 20050107
  Serious: Yes (Hospitalization, Other)
  Sender: FDA-Public Use
  Company Number: USA040363359

PATIENT
  Age: 74 Year
  Sex: Male
  Weight: 107 kg

DRUGS (1)
  1. CIALIS [Suspect]
     Indication: ERECTILE DYSFUNCTION
     Dosage: 10 MG
     Dates: start: 20040201

REACTIONS (7)
  - ASTHENIA [None]
  - BALANCE DISORDER [None]
  - BLOOD CHOLESTEROL INCREASED [None]
  - FATIGUE [None]
  - THERAPEUTIC RESPONSE DECREASED [None]
  - TRANSIENT ISCHAEMIC ATTACK [None]
  - VASCULAR OCCLUSION [None]
